FAERS Safety Report 18812755 (Version 2)
Quarter: 2021Q2

REPORT INFORMATION
  Report Type: Spontaneous
  Country: US (occurrence: US)
  Receive Date: 20210131
  Receipt Date: 20210401
  Transmission Date: 20210717
  Serious: No
  Sender: FDA-Public Use
  Company Number: US-BIOGEN-2021BI00972271

PATIENT
  Sex: Female

DRUGS (1)
  1. PLEGRIDY [Suspect]
     Active Substance: PEGINTERFERON BETA-1A
     Indication: MULTIPLE SCLEROSIS
     Route: 058
     Dates: start: 20151216

REACTIONS (5)
  - Injection site haemorrhage [Unknown]
  - Anxiety [Unknown]
  - Injection site bruising [Unknown]
  - Multiple sclerosis relapse [Unknown]
  - Needle issue [Unknown]
